FAERS Safety Report 8175614-6 (Version None)
Quarter: 2012Q1

REPORT INFORMATION
  Report Type: 
  Country: None (occurrence: None)
  Receive Date: 20120301
  Receipt Date: 20120221
  Transmission Date: 20120608
  Serious: No
  Sender: FDA-Public Use
  Company Number: US-BIOGENIDEC-2012BI005613

PATIENT
  Age: 45 Year
  Sex: Female

DRUGS (1)
  1. TYSABRI [Suspect]
     Indication: MULTIPLE SCLEROSIS
     Route: 042
     Dates: start: 20100825

REACTIONS (9)
  - CONCUSSION [None]
  - FALL [None]
  - BALANCE DISORDER [None]
  - DIZZINESS [None]
  - VERTIGO [None]
  - MIGRAINE [None]
  - MEMORY IMPAIRMENT [None]
  - HEAD INJURY [None]
  - VOMITING [None]
